FAERS Safety Report 16527295 (Version 2)
Quarter: 2019Q3

REPORT INFORMATION
  Report Type: Spontaneous
  Country: US (occurrence: US)
  Receive Date: 20190704
  Receipt Date: 20190724
  Transmission Date: 20191004
  Serious: Yes (Life-Threatening, Hospitalization)
  Sender: FDA-Public Use
  Company Number: US-TEVA-2019-US-1070385

PATIENT
  Age: 45 Year
  Sex: Male

DRUGS (6)
  1. BACLOFEN. [Suspect]
     Active Substance: BACLOFEN
     Indication: DRUG ABUSE
     Route: 048
  2. PRILOCAINE [Suspect]
     Active Substance: PRILOCAINE
     Indication: DRUG ABUSE
     Route: 048
  3. AMITRIPTYLINE [Suspect]
     Active Substance: AMITRIPTYLINE
     Indication: DRUG ABUSE
     Route: 048
  4. MELOXICAM. [Suspect]
     Active Substance: MELOXICAM
     Indication: DRUG ABUSE
     Route: 048
  5. GABAPENTIN. [Suspect]
     Active Substance: GABAPENTIN
     Indication: DRUG ABUSE
     Route: 048
  6. LIDOCAINE. [Suspect]
     Active Substance: LIDOCAINE
     Indication: DRUG ABUSE
     Route: 048

REACTIONS (6)
  - Respiratory failure [Recovering/Resolving]
  - Intentional overdose [Recovering/Resolving]
  - Drug abuse [Recovering/Resolving]
  - Coma [Recovering/Resolving]
  - Electrocardiogram QRS complex prolonged [Recovering/Resolving]
  - Toxicity to various agents [Recovering/Resolving]
